FAERS Safety Report 16132822 (Version 3)
Quarter: 2019Q2

REPORT INFORMATION
  Report Type: Spontaneous
  Country: US (occurrence: US)
  Receive Date: 20190329
  Receipt Date: 20190506
  Transmission Date: 20190711
  Serious: No
  Sender: FDA-Public Use
  Company Number: US-PFIZER INC-2019126291

PATIENT
  Sex: Male
  Weight: 72.57 kg

DRUGS (1)
  1. GABAPENTIN. [Suspect]
     Active Substance: GABAPENTIN
     Indication: NERVE INJURY
     Dosage: 1200 MG, 3X/DAY (600 MG CAPSULE, TAKES 2 TABLET 3 TIMES PER DAY)
     Route: 048
     Dates: start: 1997

REACTIONS (1)
  - Drug ineffective for unapproved indication [Unknown]
